FAERS Safety Report 12188814 (Version 2)
Quarter: 2016Q2

REPORT INFORMATION
  Report Type: Spontaneous
  Country: DE (occurrence: DE)
  Receive Date: 20160317
  Receipt Date: 20160415
  Transmission Date: 20160815
  Serious: Yes (Hospitalization, Other)
  Sender: FDA-Public Use
  Company Number: DE-JNJFOC-20160315379

PATIENT
  Age: 96 Year
  Sex: Female

DRUGS (11)
  1. XARELTO [Suspect]
     Active Substance: RIVAROXABAN
     Indication: ATRIAL FIBRILLATION
     Route: 048
     Dates: start: 201502
  2. XARELTO [Suspect]
     Active Substance: RIVAROXABAN
     Indication: CEREBROVASCULAR ACCIDENT PROPHYLAXIS
     Route: 048
     Dates: start: 201502
  3. BACLOFEN. [Concomitant]
     Active Substance: BACLOFEN
     Route: 065
  4. THIAMAZOL [Concomitant]
     Active Substance: METHIMAZOLE
     Route: 065
  5. FENTANYL. [Concomitant]
     Active Substance: FENTANYL
     Route: 065
  6. NOVODIGAL [Concomitant]
     Active Substance: .BETA.-ACETYLDIGOXIN
     Route: 065
  7. ASPIRIN. [Concomitant]
     Active Substance: ASPIRIN
     Route: 065
  8. DULCOLAX NOS [Concomitant]
     Active Substance: BISACODYL OR DOCUSATE SODIUM
     Route: 054
  9. PANTOZOL [Suspect]
     Active Substance: PANTOPRAZOLE SODIUM
     Indication: PRODUCT USED FOR UNKNOWN INDICATION
     Route: 065
  10. METOPROLOL. [Concomitant]
     Active Substance: METOPROLOL
     Route: 065
  11. LACTULOSE. [Concomitant]
     Active Substance: LACTULOSE
     Route: 065

REACTIONS (1)
  - Deep vein thrombosis [Not Recovered/Not Resolved]

NARRATIVE: CASE EVENT DATE: 20160305
